FAERS Safety Report 9930167 (Version 2)
Quarter: 2014Q1

REPORT INFORMATION
  Report Type: Spontaneous
  Country: US (occurrence: US)
  Receive Date: 20140227
  Receipt Date: 20140227
  Transmission Date: 20141002
  Serious: No
  Sender: FDA-Public Use
  Company Number: US-AMGEN-USASP2013070024

PATIENT
  Age: 49 Year
  Sex: Female

DRUGS (2)
  1. ENBREL [Suspect]
     Indication: RHEUMATOID ARTHRITIS
     Dosage: 50 MG, QWK
     Route: 058
     Dates: start: 20130327
  2. PLAQUENIL                          /00072602/ [Concomitant]
     Dosage: 200 MG, BID
     Route: 048

REACTIONS (3)
  - Drug effect incomplete [Not Recovered/Not Resolved]
  - Arthritis [Not Recovered/Not Resolved]
  - Urinary tract infection [Recovered/Resolved]
